FAERS Safety Report 4772883-7 (Version None)
Quarter: 2005Q3

REPORT INFORMATION
  Report Type: 
  Country: None (occurrence: None)
  Receive Date: 20050919
  Receipt Date: 20050915
  Transmission Date: 20060218
  Serious: Yes (Life-Threatening, Hospitalization)
  Sender: FDA-Public Use
  Company Number: DE-MERCK-0509DEU00091

PATIENT
  Age: 82 Year
  Sex: Female

DRUGS (6)
  1. VYTORIN [Suspect]
     Indication: HYPERCHOLESTEROLAEMIA
     Route: 048
     Dates: start: 20050601, end: 20050701
  2. GABAPENTIN [Suspect]
     Indication: NEUROPATHY
     Route: 048
     Dates: start: 20050601, end: 20050701
  3. ASPIRIN [Concomitant]
     Indication: CORONARY ARTERY DISEASE
     Route: 048
  4. AMITRIPTYLINE HYDROCHLORIDE [Concomitant]
     Indication: DEPRESSION
     Route: 048
  5. MOLSIDOMINE [Concomitant]
     Indication: CORONARY ARTERY DISEASE
     Route: 048
  6. RAMIPRIL [Concomitant]
     Indication: HYPERTENSION
     Route: 048

REACTIONS (5)
  - DISSEMINATED INTRAVASCULAR COAGULATION [None]
  - HEPATITIS [None]
  - MYOCARDIAL ISCHAEMIA [None]
  - RESPIRATORY FAILURE [None]
  - RHABDOMYOLYSIS [None]
